FAERS Safety Report 16791323 (Version 1)
Quarter: 2019Q3

REPORT INFORMATION
  Report Type: Report from Study
  Country: IT (occurrence: IT)
  Receive Date: 20190910
  Receipt Date: 20190910
  Transmission Date: 20191005
  Serious: Yes (Other)
  Sender: FDA-Public Use
  Company Number: IT-ROCHE-2239832

PATIENT

DRUGS (1)
  1. PIRFENIDONE. [Suspect]
     Active Substance: PIRFENIDONE
     Indication: IDIOPATHIC PULMONARY FIBROSIS
     Route: 065

REACTIONS (35)
  - Headache [Unknown]
  - Coronary artery disease [Unknown]
  - Acute respiratory failure [Unknown]
  - Small cell lung cancer [Unknown]
  - Nausea [Unknown]
  - Diarrhoea [Unknown]
  - Hepatobiliary disease [Unknown]
  - Gamma-glutamyltransferase increased [Unknown]
  - Hepatic enzyme increased [Unknown]
  - Decreased appetite [Unknown]
  - Respiratory failure [Unknown]
  - Pulmonary hypertension [Unknown]
  - Gastrointestinal disorder [Unknown]
  - Urinary tract infection [Unknown]
  - Gastrooesophageal reflux disease [Unknown]
  - Dyspnoea [Unknown]
  - Bronchitis [Unknown]
  - Renal disorder [Unknown]
  - Infection [Unknown]
  - Weight decreased [Unknown]
  - Erythema [Unknown]
  - Acute myeloid leukaemia [Unknown]
  - Respiratory disorder [Unknown]
  - Skin toxicity [Unknown]
  - Metabolic disorder [Unknown]
  - Cough [Unknown]
  - Pruritus [Unknown]
  - Abdominal pain upper [Unknown]
  - Myocardial infarction [Unknown]
  - Pneumonia [Unknown]
  - Myocardial ischaemia [Unknown]
  - Dyspepsia [Unknown]
  - Nervous system disorder [Unknown]
  - Musculoskeletal disorder [Unknown]
  - Angiopathy [Unknown]
